FAERS Safety Report 10233708 (Version 1)
Quarter: 2014Q2

REPORT INFORMATION
  Report Type: Spontaneous
  Country: US (occurrence: None)
  Receive Date: 20140611
  Receipt Date: 20140611
  Transmission Date: 20141212
  Serious: No
  Sender: FDA-Public Use
  Company Number: None

PATIENT
  Age: 77 Year
  Sex: Male

DRUGS (11)
  1. CAPECITABINE [Suspect]
     Indication: COLON CANCER
     Route: 048
     Dates: start: 20140524
  2. XELODA [Suspect]
     Route: 048
     Dates: start: 20140501, end: 20140523
  3. FLAX SEED [Concomitant]
  4. MAGNESIUM OXIDE [Concomitant]
  5. MULTI VITAMIN [Concomitant]
  6. FISH OIL [Concomitant]
  7. RED YEAST [Concomitant]
  8. CO-Q 10 [Concomitant]
  9. METOPROLOL [Concomitant]
  10. CRESTOR [Concomitant]
  11. CEPHALEXIN [Concomitant]

REACTIONS (3)
  - Hypoaesthesia [None]
  - Rash [None]
  - Contusion [None]
